FAERS Safety Report 10932740 (Version 1)
Quarter: 2015Q1

REPORT INFORMATION
  Report Type: Spontaneous
  Country: US (occurrence: US)
  Receive Date: 20150320
  Receipt Date: 20150320
  Transmission Date: 20150721
  Serious: Yes (Life-Threatening, Hospitalization, Disabling, Other)
  Sender: FDA-Public Use
  Company Number: US-AMGEN-00040265

PATIENT
  Age: 48 Year
  Sex: Male

DRUGS (7)
  1. FAMOTIDINE. [Concomitant]
     Active Substance: FAMOTIDINE
  2. CEFUROXIME. [Concomitant]
     Active Substance: CEFUROXIME
  3. ENBREL [Suspect]
     Active Substance: ETANERCEPT
     Indication: RHEUMATOID ARTHRITIS
     Dosage: 25 MG, 2 TIMES/WK
     Route: 058
  4. ACYCLOVIR                          /00587301/ [Concomitant]
     Active Substance: ACYCLOVIR
  5. CEFTRIAXONE. [Concomitant]
     Active Substance: CEFTRIAXONE
  6. METRONIDAZOLE. [Concomitant]
     Active Substance: METRONIDAZOLE
  7. RANITIDINE [Concomitant]
     Active Substance: RANITIDINE\RANITIDINE HYDROCHLORIDE
     Dosage: UNK

REACTIONS (22)
  - Cerebral haemorrhage [Recovering/Resolving]
  - Respiratory distress [Recovered/Resolved]
  - Toxic encephalopathy [Recovering/Resolving]
  - Brain oedema [Recovering/Resolving]
  - Neurodegenerative disorder [Recovering/Resolving]
  - VIIth nerve paralysis [Recovering/Resolving]
  - Ataxia [Recovering/Resolving]
  - Hemiparesis [Recovering/Resolving]
  - Amnesia [Unknown]
  - Metabolic encephalopathy [Recovering/Resolving]
  - Pyrexia [Unknown]
  - Gait disturbance [Recovering/Resolving]
  - Leukoencephalopathy [Recovering/Resolving]
  - Nosocomial infection [Recovering/Resolving]
  - Mental status changes [Recovering/Resolving]
  - Bacteraemia [Recovered/Resolved]
  - Dysphagia [Recovering/Resolving]
  - Respiratory arrest [Recovering/Resolving]
  - Cerebrovascular accident [Recovering/Resolving]
  - Unresponsive to stimuli [Recovering/Resolving]
  - Confusional state [Recovering/Resolving]
  - Pneumonia pseudomonal [Recovered/Resolved]

NARRATIVE: CASE EVENT DATE: 20000309
